FAERS Safety Report 7654394-4 (Version None)
Quarter: 2011Q3

REPORT INFORMATION
  Report Type: 
  Country: None (occurrence: None)
  Receive Date: 20110803
  Receipt Date: 20110728
  Transmission Date: 20111222
  Serious: Yes (Death, Hospitalization)
  Sender: FDA-Public Use
  Company Number: US-CELGENEUS-163-21660-11071313

PATIENT
  Sex: Female
  Weight: 71.278 kg

DRUGS (45)
  1. OXYGEN [Concomitant]
     Dosage: 4L
     Route: 045
  2. GABAPENTIN [Concomitant]
     Dosage: 300 MILLIGRAM
     Route: 048
  3. MORPHINE [Concomitant]
     Indication: BREAKTHROUGH PAIN
     Dosage: 1ML
     Route: 041
  4. CLONIDINE [Concomitant]
     Dosage: 2.5
     Route: 061
  5. TIGATUZUMAB [Suspect]
     Indication: BREAST CANCER
     Dosage: 5 MILLIGRAM/KILOGRAM
     Route: 041
     Dates: start: 20110607, end: 20110607
  6. ZOFRAN [Concomitant]
     Dosage: 4ML
     Route: 041
  7. ALBUTEROL SULFATE AUTOHALER [Concomitant]
     Dosage: 3MG/0.5MG/3ML
     Route: 055
  8. LORAZEPAM [Concomitant]
     Dosage: 1ML
     Route: 041
  9. MIDAZOLAM HCL [Concomitant]
     Indication: AGITATION
     Dosage: 2ML
     Route: 041
  10. SODIUM CHLORIDE [Concomitant]
     Dosage: 2 L
     Route: 065
  11. ABRAXANE [Suspect]
     Indication: BREAST CANCER
     Dosage: 100 MILLIGRAM/SQ. METER
     Route: 041
     Dates: start: 20110607, end: 20110607
  12. ABRAXANE [Suspect]
     Dosage: 100 MILLIGRAM/SQ. METER
     Route: 041
     Dates: start: 20110620, end: 20110620
  13. COMPAZINE [Concomitant]
     Indication: NAUSEA
     Dosage: 1ML
     Route: 041
  14. LASIX [Concomitant]
     Dosage: 4ML
     Route: 041
  15. ESOMEPRAZOLE MAGNESIUM [Concomitant]
     Dosage: 40 MILLIGRAM
     Route: 041
  16. LORAZEPAM [Concomitant]
     Indication: ANXIETY
     Dosage: 1ML
     Route: 041
  17. OXYCODONE/ACETAMINOPHEN [Concomitant]
     Indication: BREAKTHROUGH PAIN
     Dosage: 5MG-325MG
     Route: 048
  18. LEVOPHED [Concomitant]
     Indication: VASOPRESSIVE THERAPY
     Route: 065
  19. BACTRIM [Concomitant]
     Indication: PROPHYLAXIS
     Route: 065
  20. ABRAXANE [Suspect]
     Dosage: 100 MILLIGRAM/SQ. METER
     Route: 041
     Dates: start: 20110613, end: 20110613
  21. LOVENOX [Concomitant]
     Indication: PULMONARY EMBOLISM
     Route: 065
  22. LOVENOX [Concomitant]
  23. FENTANYL [Concomitant]
     Dosage: /HR
     Route: 062
  24. FENTANYL [Concomitant]
     Dosage: /HR
     Route: 062
  25. VANCOMYCIN [Concomitant]
     Dosage: 1 GRAM
     Route: 041
  26. ANTIBIOTICS [Concomitant]
     Indication: CELLULITIS
     Route: 065
  27. COMPAZINE [Concomitant]
     Indication: VOMITING
  28. FENTANYL [Concomitant]
     Dosage: /HR
     Route: 062
  29. FENTANYL [Concomitant]
     Dosage: 1.5ML
     Route: 041
  30. ONDANSETRON [Concomitant]
     Indication: NAUSEA
     Dosage: 2ML
     Route: 041
  31. OXYCODONE HCL [Concomitant]
     Dosage: 30 MILLIGRAM
     Route: 048
  32. ACETAMINOPHEN [Concomitant]
     Dosage: 2 TABS
     Route: 048
  33. FENTANYL [Concomitant]
     Dosage: 0.5ML
     Route: 041
  34. NOREPINEPHERINE ADDITIVE + SODIUM CHLORIDE [Concomitant]
     Dosage: 20MCG/MIN(37.5ML/HR)
     Route: 041
  35. AZITHROMYCIN [Concomitant]
     Route: 065
  36. TIGATUZUMAB [Suspect]
     Dosage: 5 MILLIGRAM/KILOGRAM
     Route: 041
     Dates: start: 20110620, end: 20110620
  37. ZOSYN [Concomitant]
     Indication: CHOLECYSTITIS
     Dosage: 3.375 GRAM
     Route: 041
  38. ENOXAPARIN [Concomitant]
     Dosage: 0.8ML
     Route: 058
  39. OXYCODONE HCL [Concomitant]
     Indication: PAIN
     Dosage: 40 MILLIGRAM
     Route: 048
  40. SODIUM CHLORIDE [Concomitant]
     Dosage: 100ML
     Route: 041
  41. TRAZODONE HYDROCHLORIDE [Concomitant]
     Indication: INSOMNIA
     Dosage: 50 MILLIGRAM
     Route: 048
  42. FENTANYL [Concomitant]
     Dosage: 1
     Route: 062
  43. FENTANYL [Concomitant]
     Dosage: 2ML
     Route: 041
  44. ONDANSETRON [Concomitant]
     Indication: VOMITING
  45. OXYCODONE HCL [Concomitant]
     Dosage: 2 TABS
     Route: 048

REACTIONS (5)
  - ACUTE RESPIRATORY FAILURE [None]
  - SWELLING [None]
  - RENAL FAILURE ACUTE [None]
  - INFLAMMATORY CARCINOMA OF THE BREAST [None]
  - SEPTIC SHOCK [None]
